FAERS Safety Report 7182778-X (Version None)
Quarter: 2010Q4

REPORT INFORMATION
  Report Type: 
  Country: None (occurrence: None)
  Receive Date: 20101221
  Receipt Date: 20100616
  Transmission Date: 20110411
  Serious: Yes (Other)
  Sender: FDA-Public Use
  Company Number: US-AMGEN-KDL410368

PATIENT

DRUGS (7)
  1. ENBREL [Suspect]
     Indication: PRODUCT USED FOR UNKNOWN INDICATION
     Dosage: 50 MG, QWK
     Route: 058
     Dates: start: 20040101
  2. ASPIRIN [Concomitant]
  3. CLOPIDOGREL BISULFATE [Concomitant]
  4. FOLIC ACID [Concomitant]
  5. METFORMIN HCL [Concomitant]
  6. SIMVASTATIN [Concomitant]
  7. ERGOCALCIFEROL [Concomitant]

REACTIONS (1)
  - PROSTATE CANCER [None]
